FAERS Safety Report 13193786 (Version 1)
Quarter: 2017Q1

REPORT INFORMATION
  Report Type: Spontaneous
  Country: FR (occurrence: FR)
  Receive Date: 20170207
  Receipt Date: 20170207
  Transmission Date: 20170428
  Serious: Yes (Death)
  Sender: FDA-Public Use
  Company Number: FR-TEVA-734713ROM

PATIENT
  Age: 62 Year
  Sex: Female

DRUGS (1)
  1. CARBIDOPA LEVODOPA TEVA LP 25 MG/100 MG [Suspect]
     Active Substance: CARBIDOPA\LEVODOPA
     Dosage: 1 DOSAGE FORM= 25 MG CARBIDOPA + 100 MG LEVODOPA

REACTIONS (1)
  - Death [Fatal]
